FAERS Safety Report 19060840 (Version 25)
Quarter: 2023Q2

REPORT INFORMATION
  Report Type: Other
  Country: GB (occurrence: GB)
  Receive Date: 20210326
  Receipt Date: 20230411
  Transmission Date: 20230722
  Serious: Yes (Other)
  Sender: FDA-Public Use
  Company Number: GB-ROCHE-1621948

PATIENT
  Age: 57 Year
  Sex: Female

DRUGS (111)
  1. VINORELBINE [Suspect]
     Active Substance: VINORELBINE TARTRATE
     Indication: Breast cancer
     Route: 048
     Dates: start: 20160901, end: 20161230
  2. VINORELBINE [Suspect]
     Active Substance: VINORELBINE TARTRATE
     Route: 048
     Dates: start: 20161028, end: 20161028
  3. VINORELBINE [Suspect]
     Active Substance: VINORELBINE TARTRATE
     Route: 048
     Dates: start: 20160901, end: 20160930
  4. VINORELBINE [Suspect]
     Active Substance: VINORELBINE TARTRATE
     Route: 048
     Dates: start: 20160901, end: 20161028
  5. ADO-TRASTUZUMAB EMTANSINE [Suspect]
     Active Substance: ADO-TRASTUZUMAB EMTANSINE
     Indication: Breast cancer
     Route: 042
     Dates: start: 20170120, end: 20170830
  6. ADO-TRASTUZUMAB EMTANSINE [Suspect]
     Active Substance: ADO-TRASTUZUMAB EMTANSINE
     Route: 042
     Dates: start: 20150506, end: 20150506
  7. ADO-TRASTUZUMAB EMTANSINE [Suspect]
     Active Substance: ADO-TRASTUZUMAB EMTANSINE
     Route: 042
     Dates: start: 20150527, end: 20160630
  8. ADO-TRASTUZUMAB EMTANSINE [Suspect]
     Active Substance: ADO-TRASTUZUMAB EMTANSINE
     Dosage: 20/JUN/2017
     Route: 042
  9. TRASTUZUMAB [Suspect]
     Active Substance: TRASTUZUMAB
     Indication: Breast cancer
     Dosage: LOADING DOSE
     Route: 041
     Dates: start: 20150506, end: 20150506
  10. TRASTUZUMAB [Suspect]
     Active Substance: TRASTUZUMAB
     Route: 042
     Dates: start: 20150527, end: 20160630
  11. TRASTUZUMAB [Suspect]
     Active Substance: TRASTUZUMAB
     Route: 042
     Dates: start: 20170620
  12. TRASTUZUMAB [Suspect]
     Active Substance: TRASTUZUMAB
     Route: 042
     Dates: start: 20150527, end: 20160630
  13. PERTUZUMAB [Suspect]
     Active Substance: PERTUZUMAB
     Indication: Breast cancer
     Dosage: LOADING DOSE
     Route: 042
     Dates: start: 20150507, end: 20150507
  14. PERTUZUMAB [Suspect]
     Active Substance: PERTUZUMAB
     Route: 042
     Dates: start: 20150527, end: 20160630
  15. PERTUZUMAB [Suspect]
     Active Substance: PERTUZUMAB
     Route: 042
     Dates: start: 20150527, end: 20160630
  16. PERTUZUMAB [Suspect]
     Active Substance: PERTUZUMAB
     Route: 042
     Dates: start: 20150527, end: 20160630
  17. PERTUZUMAB [Suspect]
     Active Substance: PERTUZUMAB
     Dosage: LOADING DOSE
     Route: 042
     Dates: start: 20150507
  18. PERTUZUMAB [Suspect]
     Active Substance: PERTUZUMAB
     Route: 042
     Dates: start: 20150507, end: 20150507
  19. EXEMESTANE [Suspect]
     Active Substance: EXEMESTANE
     Indication: Breast cancer
     Route: 048
     Dates: start: 20090921
  20. EXEMESTANE [Suspect]
     Active Substance: EXEMESTANE
     Route: 048
     Dates: start: 20150328
  21. EXEMESTANE [Suspect]
     Active Substance: EXEMESTANE
     Route: 048
     Dates: start: 20151021
  22. EXEMESTANE [Suspect]
     Active Substance: EXEMESTANE
     Route: 048
     Dates: start: 201607, end: 20160921
  23. EXEMESTANE [Suspect]
     Active Substance: EXEMESTANE
     Route: 048
     Dates: start: 20150514, end: 20151021
  24. DOCETAXEL [Suspect]
     Active Substance: DOCETAXEL
     Indication: Breast cancer
     Route: 042
     Dates: start: 20150507, end: 20150903
  25. DOCETAXEL [Suspect]
     Active Substance: DOCETAXEL
     Route: 042
     Dates: start: 20150507, end: 20150903
  26. DOCETAXEL [Suspect]
     Active Substance: DOCETAXEL
     Route: 048
     Dates: start: 20161028, end: 20161028
  27. DOCETAXEL [Suspect]
     Active Substance: DOCETAXEL
     Route: 048
     Dates: end: 20161111
  28. DOCETAXEL [Suspect]
     Active Substance: DOCETAXEL
     Route: 048
     Dates: end: 20150328
  29. CAPECITABINE [Suspect]
     Active Substance: CAPECITABINE
     Indication: Breast cancer
     Route: 048
     Dates: start: 20160901, end: 20160914
  30. CAPECITABINE [Suspect]
     Active Substance: CAPECITABINE
     Route: 048
     Dates: start: 20150901, end: 20160914
  31. CAPECITABINE [Suspect]
     Active Substance: CAPECITABINE
     Route: 048
     Dates: start: 20150901, end: 20160914
  32. CAPECITABINE [Suspect]
     Active Substance: CAPECITABINE
     Route: 048
     Dates: start: 20160914
  33. CAPECITABINE [Suspect]
     Active Substance: CAPECITABINE
     Route: 048
     Dates: start: 20150901, end: 20160914
  34. ANASTROZOLE [Suspect]
     Active Substance: ANASTROZOLE
     Indication: Breast cancer
     Route: 048
     Dates: start: 20151021
  35. ANASTROZOLE [Suspect]
     Active Substance: ANASTROZOLE
     Route: 048
     Dates: start: 20151021
  36. ANASTROZOLE [Suspect]
     Active Substance: ANASTROZOLE
     Route: 048
     Dates: start: 20151021, end: 20170315
  37. ANASTROZOLE [Suspect]
     Active Substance: ANASTROZOLE
     Route: 048
     Dates: start: 20170830, end: 20171027
  38. AMITRIPTYLINE [Concomitant]
     Active Substance: AMITRIPTYLINE
     Indication: Product used for unknown indication
     Dosage: 10 MILLIGRAM, DAILY
     Route: 048
     Dates: start: 201603
  39. LEVETIRACETAM [Concomitant]
     Active Substance: LEVETIRACETAM
     Indication: Epilepsy
     Route: 048
     Dates: start: 20160727, end: 20171027
  40. LEVETIRACETAM [Concomitant]
     Active Substance: LEVETIRACETAM
     Route: 048
     Dates: start: 20160811, end: 20161027
  41. LEVETIRACETAM [Concomitant]
     Active Substance: LEVETIRACETAM
     Dosage: BID (2/DAY)
     Route: 048
     Dates: start: 20160727, end: 20160810
  42. IBUPROFEN [Concomitant]
     Active Substance: IBUPROFEN
     Indication: Headache
     Dosage: 1 TABLET
     Route: 048
     Dates: start: 20170201
  43. GELCLAIR (AUSTRALIA) [Concomitant]
     Dosage: QD (1/DAY)
     Route: 048
     Dates: start: 20150514, end: 20150514
  44. ACETAMINOPHEN [Concomitant]
     Active Substance: ACETAMINOPHEN
     Indication: Headache
     Dosage: UNK, UNKNOWN
     Route: 048
     Dates: start: 20160629, end: 20171027
  45. HERBALS\SENNOSIDES [Concomitant]
     Active Substance: HERBALS\SENNOSIDES
     Indication: Constipation
     Dosage: UNK, UNKNOWN
     Route: 048
     Dates: start: 20161221, end: 20170327
  46. RAMIPRIL [Concomitant]
     Active Substance: RAMIPRIL
     Indication: Palpitations
     Dosage: 5 MG, QD (1/DAY)
     Route: 048
     Dates: start: 20160308, end: 20160602
  47. RAMIPRIL [Concomitant]
     Active Substance: RAMIPRIL
     Indication: Cough
     Route: 065
  48. NITROFURANTOIN [Concomitant]
     Active Substance: NITROFURANTOIN
     Indication: Product used for unknown indication
     Dosage: UNK, UNKNOWN
     Route: 065
     Dates: start: 20170621, end: 20170623
  49. ONDANSETRON [Concomitant]
     Active Substance: ONDANSETRON
     Indication: Product used for unknown indication
     Dosage: UNK
     Route: 048
     Dates: start: 20150508, end: 20150904
  50. ONDANSETRON [Concomitant]
     Active Substance: ONDANSETRON
     Dosage: UNK, UNKNOWN
     Route: 048
     Dates: start: 20161111, end: 2016
  51. METOCLOPRAMIDE [Concomitant]
     Active Substance: METOCLOPRAMIDE
     Indication: Product used for unknown indication
     Route: 042
     Dates: start: 20150506, end: 20150903
  52. METOCLOPRAMIDE [Concomitant]
     Active Substance: METOCLOPRAMIDE
     Dosage: SUBSEQUENT DOSE RECEIVED ON 18/NOV/2016
     Route: 048
     Dates: start: 20150506, end: 2016
  53. METOCLOPRAMIDE [Concomitant]
     Active Substance: METOCLOPRAMIDE
     Dosage: SUBSEQUENT DOSE RECEIVED ON 18/NOV/2016
     Route: 048
     Dates: start: 20170301, end: 2017
  54. METOCLOPRAMIDE [Concomitant]
     Active Substance: METOCLOPRAMIDE
     Dosage: 2 DF, QD (1/DAY)
     Route: 048
     Dates: start: 20170815, end: 2017
  55. METOCLOPRAMIDE [Concomitant]
     Active Substance: METOCLOPRAMIDE
     Dosage: UNK, UNKNOWN
     Route: 048
     Dates: start: 20170815, end: 2017
  56. SPIRONOLACTONE [Concomitant]
     Active Substance: SPIRONOLACTONE
     Indication: Palpitations
     Dosage: UNK, UNKNOWN
     Route: 048
     Dates: start: 20160602, end: 20171027
  57. LOSARTAN [Concomitant]
     Active Substance: LOSARTAN
     Indication: Palpitations
     Dosage: 50 MG, UNK
     Route: 048
     Dates: start: 20160602, end: 20171027
  58. LOSARTAN [Concomitant]
     Active Substance: LOSARTAN
     Dosage: 50 MG, UNK
     Route: 048
  59. LACTULOSE [Concomitant]
     Active Substance: LACTULOSE
     Indication: Neuralgia
     Dosage: UNK
     Route: 048
     Dates: start: 201603, end: 20171021
  60. LACTULOSE [Concomitant]
     Active Substance: LACTULOSE
     Dosage: UNK
     Route: 048
     Dates: start: 20161221, end: 20171021
  61. LACTULOSE [Concomitant]
     Active Substance: LACTULOSE
     Dosage: UNK
     Route: 048
  62. LANSOPRAZOLE [Concomitant]
     Active Substance: LANSOPRAZOLE
     Indication: Prophylaxis
     Dosage: UNK, UNKNOWN
     Route: 048
     Dates: start: 20150504, end: 20171027
  63. ANASTROZOLE [Concomitant]
     Active Substance: ANASTROZOLE
     Indication: Product used for unknown indication
     Dosage: 1 MILLIGRAM DAILY;
     Route: 048
     Dates: start: 20151021, end: 20171027
  64. ANASTROZOLE [Concomitant]
     Active Substance: ANASTROZOLE
     Indication: Breast neoplasm
     Dosage: 1 MG, QD
     Route: 048
  65. ANASTROZOLE [Concomitant]
     Active Substance: ANASTROZOLE
     Route: 048
  66. ANASTROZOLE [Concomitant]
     Active Substance: ANASTROZOLE
     Dosage: 1 MG, QD (1/DAY), DATE OF LAST ADMINISTERED DOSE: 27-OCT-2017
     Route: 048
     Dates: start: 20151021, end: 20171027
  67. ANASTROZOLE [Concomitant]
     Active Substance: ANASTROZOLE
     Dosage: 1 MG, QD (1/DAY)
     Route: 048
     Dates: start: 20151021
  68. LOPERAMIDE [Concomitant]
     Active Substance: LOPERAMIDE
     Route: 048
     Dates: start: 20150514, end: 20150904
  69. QUININE SULFATE [Concomitant]
     Active Substance: QUININE SULFATE
     Indication: Muscle spasms
     Dosage: 200 MG, UNK
     Route: 048
     Dates: start: 20161123, end: 20171027
  70. CHLORPHENIRAMINE MALEATE [Concomitant]
     Active Substance: CHLORPHENIRAMINE MALEATE
     Indication: Rash
     Dosage: 5 MILLIGRAM, PRN
     Route: 048
     Dates: start: 20150725
  71. PEGFILGRASTIM [Concomitant]
     Active Substance: PEGFILGRASTIM
     Indication: Product used for unknown indication
     Dosage: UNK, UNKNOWN
     Route: 058
     Dates: start: 20150506, end: 20150903
  72. TRIMETHOPRIM [Concomitant]
     Active Substance: TRIMETHOPRIM
     Indication: Urinary tract infection
     Dosage: UNK, UNKNOWN
     Route: 048
     Dates: start: 20170209, end: 20170216
  73. SENNA [Concomitant]
     Active Substance: SENNA LEAF\SENNOSIDES\SENNOSIDES A AND B
     Indication: Constipation
     Dosage: UNK, UNKNOWN
     Route: 048
     Dates: start: 20161221, end: 20170327
  74. VENTOLIN [Concomitant]
     Active Substance: ALBUTEROL SULFATE
     Indication: Wheezing
     Dosage: UNK, UNKNOWN
     Route: 065
     Dates: start: 20170621, end: 2017
  75. DEXAMETHASONE [Concomitant]
     Active Substance: DEXAMETHASONE
     Indication: Premedication
     Dosage: 2 MG, UNKNOWN
     Route: 048
     Dates: start: 20150504, end: 20150904
  76. DEXAMETHASONE [Concomitant]
     Active Substance: DEXAMETHASONE
     Dosage: 1 DF, QD (1/DAY)
     Route: 048
     Dates: start: 20161004, end: 20161123
  77. DEXAMETHASONE [Concomitant]
     Active Substance: DEXAMETHASONE
     Dosage: 1 DF, QD (1/DAY)
     Route: 048
     Dates: start: 20160713, end: 201607
  78. DEXAMETHASONE [Concomitant]
     Active Substance: DEXAMETHASONE
     Dosage: 1 DF, QD (1/DAY)
     Route: 048
     Dates: start: 201607, end: 20160921
  79. DEXAMETHASONE [Concomitant]
     Active Substance: DEXAMETHASONE
     Dosage: 1 DF, QD (1/DAY)
     Route: 048
     Dates: start: 20161123, end: 20161130
  80. DEXAMETHASONE [Concomitant]
     Active Substance: DEXAMETHASONE
     Dosage: 1 DF, QD (1/DAY)
     Route: 048
     Dates: start: 20150506, end: 20150717
  81. DEXAMETHASONE [Concomitant]
     Active Substance: DEXAMETHASONE
     Dosage: UNK
     Route: 048
     Dates: start: 20161130, end: 20161201
  82. DEXAMETHASONE [Concomitant]
     Active Substance: DEXAMETHASONE
     Dosage: UNK
     Route: 048
     Dates: start: 201612, end: 201612
  83. DEXAMETHASONE [Concomitant]
     Active Substance: DEXAMETHASONE
     Dosage: 2 MG, UNK
     Route: 048
     Dates: start: 201612, end: 20170510
  84. DEXAMETHASONE [Concomitant]
     Active Substance: DEXAMETHASONE
     Dosage: UNK
     Route: 048
     Dates: start: 20170216, end: 20170830
  85. DEXAMETHASONE [Concomitant]
     Active Substance: DEXAMETHASONE
     Dosage: UNK, UNKNOWN
     Route: 048
     Dates: start: 20160713, end: 201607
  86. DEXAMETHASONE [Concomitant]
     Active Substance: DEXAMETHASONE
     Dosage: 1 DF, QD (1/DAY)
     Route: 048
     Dates: start: 201612, end: 20170510
  87. CALCIUM GLUCONATE [Concomitant]
     Active Substance: CALCIUM GLUCONATE
     Indication: Product used for unknown indication
     Route: 065
     Dates: end: 20170201
  88. CODEINE [Concomitant]
     Active Substance: CODEINE
     Indication: Diarrhoea
     Dosage: UNK, UNKNOWN
     Route: 048
     Dates: start: 20150603, end: 20150715
  89. CODEINE [Concomitant]
     Active Substance: CODEINE
     Dosage: UNK, UNKNOWN
     Route: 048
  90. COCODAMOL [Concomitant]
     Active Substance: ACETAMINOPHEN\CODEINE PHOSPHATE
     Indication: Headache
     Dosage: UNK, UNKNOWN
     Route: 048
     Dates: start: 20160929, end: 20171027
  91. CHLORHEXIDINE GLUCONATE [Concomitant]
     Active Substance: CHLORHEXIDINE GLUCONATE
     Indication: Mucosal inflammation
     Dosage: UNK, PRN 1 MOUTH WASH AS NEEDED
     Route: 048
     Dates: start: 20150514, end: 20150715
  92. CODEINE PHOSPHATE [Concomitant]
     Active Substance: CODEINE PHOSPHATE
     Indication: Product used for unknown indication
     Dosage: 60 MILLIGRAM, QD (QDS AS NEEDED)
     Route: 048
     Dates: start: 20150603
  93. HERBALS\SENNOSIDES [Concomitant]
     Active Substance: HERBALS\SENNOSIDES
     Indication: Constipation
     Dosage: UNK, UNKNOWN
     Route: 048
     Dates: start: 20161221, end: 20170327
  94. CALAMINE [Concomitant]
     Active Substance: CALAMINE\FERRIC OXIDE RED\ZINC OXIDE
     Indication: Product used for unknown indication
     Dosage: UNK UNK, PRN 1 APPLICATION, AS NEEDED
     Route: 061
     Dates: start: 20150915
  95. BECLOMETHASONE DIPROPIONATE [Concomitant]
     Active Substance: BECLOMETHASONE DIPROPIONATE
     Indication: Wheezing
     Dosage: UNK, UNKNOWN
     Route: 050
     Dates: end: 20160108
  96. BISOPROLOL [Concomitant]
     Active Substance: BISOPROLOL
     Indication: Palpitations
     Dates: start: 20160602, end: 20171027
  97. AMOXICILLIN [Concomitant]
     Active Substance: AMOXICILLIN
     Indication: Oropharyngeal pain
     Dosage: 3 DF,  TID (3/DAY)
     Route: 048
     Dates: start: 20151104, end: 20151111
  98. CALCIUM CARBONATE\CHOLECALCIFEROL [Concomitant]
     Active Substance: CALCIUM CARBONATE\CHOLECALCIFEROL
     Indication: Product used for unknown indication
     Dosage: UNK, UNKNOWN
     Route: 048
     Dates: end: 20171027
  99. APREPITANT [Concomitant]
     Active Substance: APREPITANT
     Indication: Prophylaxis
     Dosage: UNK UNK, UNKNOWN
     Route: 065
     Dates: start: 20150527, end: 20150905
  100. CYCLIZINE [Concomitant]
     Active Substance: CYCLIZINE
     Indication: Prophylaxis
     Route: 048
     Dates: start: 20150603, end: 20150715
  101. FLUCLOXACILLIN [Concomitant]
     Active Substance: FLUCLOXACILLIN
     Indication: Nail infection
     Dosage: 750 MILLIGRAM, QD
     Route: 048
  102. FLUCLOXACILLIN [Concomitant]
     Active Substance: FLUCLOXACILLIN
     Dosage: 250 MILLIGRAM, TID
     Route: 048
     Dates: start: 20150603, end: 20150610
  103. FLUCONAZOLE [Concomitant]
     Active Substance: FLUCONAZOLE
     Indication: Product used for unknown indication
     Dosage: UNK, UNKNOWN
     Route: 048
     Dates: start: 20171004, end: 20171004
  104. HYDROCORTISONE [Concomitant]
     Active Substance: HYDROCORTISONE
     Indication: Rash
     Dosage: UNK,LOTION APPLICATION
     Route: 061
  105. KEPPRA [Concomitant]
     Active Substance: LEVETIRACETAM
     Indication: Muscle twitching
     Route: 048
     Dates: start: 20160727, end: 20160810
  106. KEPPRA [Concomitant]
     Active Substance: LEVETIRACETAM
     Dosage: UNK UNK, BID (2/DAY)
     Route: 048
     Dates: start: 20160811, end: 20161027
  107. ARIMIDEX [Concomitant]
     Active Substance: ANASTROZOLE
     Dates: start: 20151021, end: 20171027
  108. AROMASIN [Concomitant]
     Active Substance: EXEMESTANE
     Dates: start: 201607
  109. AROMASIN [Concomitant]
     Active Substance: EXEMESTANE
     Dates: start: 20090921
  110. AROMASIN [Concomitant]
     Active Substance: EXEMESTANE
     Dates: start: 20150328
  111. AROMASIN [Concomitant]
     Active Substance: EXEMESTANE
     Dates: start: 20151021

REACTIONS (33)
  - Seizure [Unknown]
  - Urinary tract infection [Recovered/Resolved]
  - Hiccups [Recovered/Resolved]
  - Abdominal pain [Unknown]
  - Nausea [Recovered/Resolved]
  - Diarrhoea [Recovered/Resolved]
  - Constipation [Recovered/Resolved]
  - Poor peripheral circulation [Unknown]
  - Chest pain [Recovered/Resolved]
  - Cough [Recovered/Resolved]
  - Headache [Unknown]
  - Vaginal discharge [Recovered/Resolved]
  - Muscle spasms [Unknown]
  - Oropharyngeal pain [Recovered/Resolved]
  - Neuralgia [Not Recovered/Not Resolved]
  - Mucosal inflammation [Unknown]
  - Left ventricular dysfunction [Not Recovered/Not Resolved]
  - Alopecia [Unknown]
  - Muscle twitching [Unknown]
  - Weight decreased [Unknown]
  - Nail infection [Recovered/Resolved]
  - Nasopharyngitis [Recovered/Resolved]
  - Dizziness [Unknown]
  - Nail disorder [Recovered/Resolved]
  - Rash [Recovered/Resolved]
  - Depressed mood [Not Recovered/Not Resolved]
  - Neuropathy peripheral [Not Recovered/Not Resolved]
  - Palpitations [Not Recovered/Not Resolved]
  - Lacrimation increased [Not Recovered/Not Resolved]
  - Headache [Recovered/Resolved]
  - Neuropathy peripheral [Not Recovered/Not Resolved]
  - Nausea [Recovered/Resolved]
  - Wheezing [Recovered/Resolved]

NARRATIVE: CASE EVENT DATE: 20150514
